FAERS Safety Report 7197578-4 (Version None)
Quarter: 2010Q4

REPORT INFORMATION
  Report Type: 
  Country: None (occurrence: None)
  Receive Date: 20101227
  Receipt Date: 20101216
  Transmission Date: 20110411
  Serious: Yes (Other)
  Sender: FDA-Public Use
  Company Number: JP-JNJFOC-20101107325

PATIENT
  Age: 56 Year
  Sex: Male

DRUGS (6)
  1. FINIBAX [Suspect]
     Indication: LIVER ABSCESS
     Route: 041
  2. FINIBAX [Suspect]
     Indication: PNEUMONIA
     Route: 041
  3. RIMATIL [Concomitant]
     Route: 042
  4. AZULFIDINE [Concomitant]
     Route: 042
  5. SELBEX [Concomitant]
     Route: 042
  6. LOXONIN [Concomitant]
     Route: 042

REACTIONS (1)
  - HYPONATRAEMIA [None]
